FAERS Safety Report 5776134-6 (Version None)
Quarter: 2008Q2

REPORT INFORMATION
  Report Type: 
  Country: None (occurrence: None)
  Receive Date: 20080617
  Receipt Date: 20080612
  Transmission Date: 20081010
  Serious: Yes (Other)
  Sender: FDA-Public Use
  Company Number: US-AMGEN-QUU279030

PATIENT
  Sex: Female
  Weight: 49.9 kg

DRUGS (7)
  1. ENBREL [Suspect]
     Indication: RHEUMATOID ARTHRITIS
     Route: 058
     Dates: start: 19990101
  2. MESALAMINE [Concomitant]
  3. LEXAPRO [Concomitant]
  4. ZANTAC [Concomitant]
  5. BONIVA [Concomitant]
  6. PREVACID [Concomitant]
  7. ESTRADIOL [Concomitant]

REACTIONS (2)
  - COELIAC DISEASE [None]
  - INJECTION SITE BRUISING [None]
